FAERS Safety Report 6058766-3 (Version None)
Quarter: 2009Q1

REPORT INFORMATION
  Report Type: 
  Country: None (occurrence: None)
  Receive Date: 20090130
  Receipt Date: 20090121
  Transmission Date: 20090719
  Serious: Yes (Other)
  Sender: FDA-Public Use
  Company Number: DK-JNJFOC-20090105012

PATIENT
  Sex: Female

DRUGS (1)
  1. REMICADE [Suspect]
     Indication: RHEUMATOID ARTHRITIS
     Dosage: 3 MG IN WEEK 0, 2, 6, 8
     Route: 042

REACTIONS (4)
  - HYPERSENSITIVITY [None]
  - INFUSION RELATED REACTION [None]
  - LIP SWELLING [None]
  - PARAESTHESIA [None]
